FAERS Safety Report 15901024 (Version 2)
Quarter: 2020Q4

REPORT INFORMATION
  Report Type: Spontaneous
  Country: US (occurrence: US)
  Receive Date: 20190201
  Receipt Date: 20201104
  Transmission Date: 20210113
  Serious: Yes (Other)
  Sender: FDA-Public Use
  Company Number: US-GILEAD-2019-0387831

PATIENT
  Sex: Female
  Weight: 121.11 kg

DRUGS (55)
  1. COMBIVIR [Concomitant]
     Active Substance: LAMIVUDINE\ZIDOVUDINE
  2. LEXIVA [Concomitant]
     Active Substance: FOSAMPRENAVIR CALCIUM
  3. SUSTIVA [Concomitant]
     Active Substance: EFAVIRENZ
  4. CYCLOBENZAPRINE. [Concomitant]
     Active Substance: CYCLOBENZAPRINE
  5. FUROSEMIDE. [Concomitant]
     Active Substance: FUROSEMIDE
  6. LEVAQUIN [Concomitant]
     Active Substance: LEVOFLOXACIN
  7. MELOXICAM. [Concomitant]
     Active Substance: MELOXICAM
  8. OMEPRAZOLE. [Concomitant]
     Active Substance: OMEPRAZOLE
  9. IBUPROFEN. [Concomitant]
     Active Substance: IBUPROFEN
  10. DELTASONE [PREDNISOLONE] [Concomitant]
  11. GABAPENTIN. [Concomitant]
     Active Substance: GABAPENTIN
  12. KENALOG COMP. MED MYCOSTATIN [Concomitant]
  13. KEPPRA [Concomitant]
     Active Substance: LEVETIRACETAM
  14. MECLIZINE HCL [Concomitant]
     Active Substance: MECLIZINE HYDROCHLORIDE
  15. PREDNISOLONE. [Concomitant]
     Active Substance: PREDNISOLONE
  16. VIREAD [Suspect]
     Active Substance: TENOFOVIR DISOPROXIL FUMARATE
     Indication: HIV INFECTION
     Dosage: UNK
     Route: 065
     Dates: start: 2013, end: 20141113
  17. EMTRIVA [Concomitant]
     Active Substance: EMTRICITABINE
  18. ASPIRIN (E.C.) [Concomitant]
     Active Substance: ASPIRIN
  19. LOPERAMIDE [Concomitant]
     Active Substance: LOPERAMIDE
  20. TYLENOL WITH CODEINE [Concomitant]
     Active Substance: ACETAMINOPHEN\CODEINE PHOSPHATE
  21. KALETRA [Concomitant]
     Active Substance: LOPINAVIR\RITONAVIR
  22. ACETAMINOPHEN AND CODEINE [Concomitant]
     Active Substance: ACETAMINOPHEN\CODEINE PHOSPHATE
  23. CLARITIN [Concomitant]
     Active Substance: LORATADINE
  24. PRAVACHOL [Concomitant]
     Active Substance: PRAVASTATIN SODIUM
  25. DOXYCYCLINE [DOXYCYCLINE MONOHYDRATE] [Concomitant]
  26. CHOLECALCIFEROL [Concomitant]
     Active Substance: CHOLECALCIFEROL
  27. AMLODIPINE BESYLATE. [Concomitant]
     Active Substance: AMLODIPINE BESYLATE
  28. AZITHROMYCIN ANHYDROUS. [Concomitant]
     Active Substance: AZITHROMYCIN ANHYDROUS
  29. BENZONATATE. [Concomitant]
     Active Substance: BENZONATATE
  30. METOCLOPRAMIDE. [Concomitant]
     Active Substance: METOCLOPRAMIDE
  31. ERGOCALCIFEROL. [Concomitant]
     Active Substance: ERGOCALCIFEROL
  32. PHENAZOPYRIDINE. [Concomitant]
     Active Substance: PHENAZOPYRIDINE
  33. METHYLPREDNISOLONE. [Concomitant]
     Active Substance: METHYLPREDNISOLONE
  34. VITAMIN D3 [Concomitant]
     Active Substance: CHOLECALCIFEROL
  35. TRUVADA [Suspect]
     Active Substance: EMTRICITABINE\TENOFOVIR DISOPROXIL FUMARATE
     Indication: HIV INFECTION
     Dosage: UNK
     Route: 048
     Dates: start: 2005
  36. DUREZOL [Concomitant]
     Active Substance: DIFLUPREDNATE
  37. METRONIDAZOLE. [Concomitant]
     Active Substance: METRONIDAZOLE
  38. RANITIDINE. [Concomitant]
     Active Substance: RANITIDINE
  39. GENVOYA [Concomitant]
     Active Substance: COBICISTAT\ELVITEGRAVIR\EMTRICITABINE\TENOFOVIR ALAFENAMIDE FUMARATE
  40. TOBRAMYCIN. [Concomitant]
     Active Substance: TOBRAMYCIN
  41. NAPROXEN. [Concomitant]
     Active Substance: NAPROXEN
  42. ATARAX [Concomitant]
     Active Substance: HYDROXYZINE HYDROCHLORIDE
  43. HYDROCODONE BITARTRATE AND ACETAMINOPHEN [Concomitant]
     Active Substance: ACETAMINOPHEN\HYDROCODONE BITARTRATE
  44. LISINOPRIL. [Concomitant]
     Active Substance: LISINOPRIL
  45. CIPROFLOXACIN. [Concomitant]
     Active Substance: CIPROFLOXACIN
  46. STRIBILD [Suspect]
     Active Substance: COBICISTAT\ELVITEGRAVIR\EMTRICITABINE\TENOFOVIR DISOPROXIL FUMARATE
     Indication: HIV INFECTION
     Dosage: UNK
     Route: 048
     Dates: start: 2005
  47. NORVIR [Concomitant]
     Active Substance: RITONAVIR
  48. TENORMIN [Concomitant]
     Active Substance: ATENOLOL
  49. BENADRYL [Concomitant]
     Active Substance: DIPHENHYDRAMINE HYDROCHLORIDE
  50. CIPROFLOXACIN HCL [Concomitant]
     Active Substance: CIPROFLOXACIN HYDROCHLORIDE
  51. DOXYCYCLINE MONOHYDRATE [Concomitant]
     Active Substance: DOXYCYCLINE
  52. HYDROCORTISONE VALERATE. [Concomitant]
     Active Substance: HYDROCORTISONE VALERATE
  53. TRAMADOL. [Concomitant]
     Active Substance: TRAMADOL
  54. PROMETHAZINE [Concomitant]
     Active Substance: PROMETHAZINE HYDROCHLORIDE
  55. VITAMIN D2 [Concomitant]
     Active Substance: ERGOCALCIFEROL

REACTIONS (10)
  - Gait disturbance [Not Recovered/Not Resolved]
  - Pain [Not Recovered/Not Resolved]
  - Emotional distress [Not Recovered/Not Resolved]
  - Economic problem [Not Recovered/Not Resolved]
  - Renal impairment [Not Recovered/Not Resolved]
  - Anhedonia [Not Recovered/Not Resolved]
  - Osteoporosis [Unknown]
  - Bone density decreased [Unknown]
  - Anxiety [Not Recovered/Not Resolved]
  - Loss of personal independence in daily activities [Not Recovered/Not Resolved]
